FAERS Safety Report 7303315-2 (Version None)
Quarter: 2011Q1

REPORT INFORMATION
  Report Type: 
  Country: None (occurrence: None)
  Receive Date: 20110221
  Receipt Date: 20110204
  Transmission Date: 20110831
  Serious: Yes (Death, Other)
  Sender: FDA-Public Use
  Company Number: GB-SOLVAY-00311001220

PATIENT
  Age: 60 Year
  Sex: Male

DRUGS (1)
  1. TESTOSTERONE [Suspect]
     Indication: BLOOD TESTOSTERONE DECREASED
     Dosage: DAILY DOSE:  UNKNOWN
     Route: 062

REACTIONS (5)
  - OEDEMA PERIPHERAL [None]
  - INTENTIONAL DRUG MISUSE [None]
  - DRUG INTOLERANCE [None]
  - CARDIOMEGALY [None]
  - CARDIAC FAILURE [None]
